FAERS Safety Report 10365226 (Version 1)
Quarter: 2014Q3

REPORT INFORMATION
  Report Type: Spontaneous
  Country: IT (occurrence: IT)
  Receive Date: 20140806
  Receipt Date: 20140806
  Transmission Date: 20150326
  Serious: Yes (Other)
  Sender: FDA-Public Use
  Company Number: PHHY2014IT095707

PATIENT
  Age: 58 Year
  Sex: Female

DRUGS (4)
  1. CITALOPRAM [Suspect]
     Active Substance: CITALOPRAM HYDROBROMIDE
     Indication: ANXIETY
     Dosage: 20 MG, PER DAY
  2. CITALOPRAM [Suspect]
     Active Substance: CITALOPRAM HYDROBROMIDE
     Indication: MAJOR DEPRESSION
     Dosage: 40 MG, PER DAY
     Route: 042
  3. CITALOPRAM [Suspect]
     Active Substance: CITALOPRAM HYDROBROMIDE
     Indication: SOMATISATION DISORDER
     Dosage: 40 MG, PER DAY
     Route: 048
  4. LEVOTHYROXINE [Concomitant]
     Active Substance: LEVOTHYROXINE
     Indication: AUTOIMMUNE THYROIDITIS
     Dosage: 50 UG, PER DAY

REACTIONS (10)
  - Logorrhoea [Unknown]
  - Condition aggravated [Unknown]
  - Hypochondriasis [Unknown]
  - Psychiatric symptom [Unknown]
  - Pathological gambling [Recovered/Resolved]
  - Somatisation disorder [Unknown]
  - Dizziness [Unknown]
  - Irritability [Unknown]
  - Tremor [Unknown]
  - Anxiety [Unknown]
